FAERS Safety Report 5029942-3 (Version None)
Quarter: 2006Q2

REPORT INFORMATION
  Report Type: 
  Country: None (occurrence: None)
  Receive Date: 20060620
  Receipt Date: 20060614
  Transmission Date: 20061013
  Serious: Yes (Hospitalization)
  Sender: FDA-Public Use
  Company Number: IT-GLAXOSMITHKLINE-B0428015A

PATIENT
  Age: 18 Year
  Sex: Male

DRUGS (1)
  1. AUGMENTIN '125' [Suspect]
     Indication: PHARYNGITIS
     Route: 048
     Dates: start: 20060505, end: 20060512

REACTIONS (3)
  - ERYTHEMA [None]
  - SKIN LESION [None]
  - URTICARIA [None]
